FAERS Safety Report 8256586-2 (Version None)
Quarter: 2012Q2

REPORT INFORMATION
  Report Type: 
  Country: None (occurrence: None)
  Receive Date: 20120403
  Receipt Date: 20120329
  Transmission Date: 20120825
  Serious: Yes (Hospitalization)
  Sender: FDA-Public Use
  Company Number: DE-PFIZER INC-2012081657

PATIENT
  Sex: Female

DRUGS (1)
  1. MEDROXYPROGESTERONE ACETATE [Suspect]
     Dosage: UNK

REACTIONS (5)
  - HEAD TITUBATION [None]
  - DYSMENORRHOEA [None]
  - ANXIETY [None]
  - DEPRESSION [None]
  - HYPOGLYCAEMIA [None]
